FAERS Safety Report 22186907 (Version 3)
Quarter: 2023Q2

REPORT INFORMATION
  Report Type: Spontaneous
  Country: US (occurrence: US)
  Receive Date: 20230407
  Receipt Date: 20230628
  Transmission Date: 20230721
  Serious: Yes (Hospitalization)
  Sender: FDA-Public Use
  Company Number: US-BIOVITRUM-2023-US-006510

PATIENT
  Age: 43 Year
  Sex: Male

DRUGS (1)
  1. KINERET [Suspect]
     Active Substance: ANAKINRA
     Indication: Juvenile idiopathic arthritis
     Dosage: DAILY
     Route: 058
     Dates: start: 20200305

REACTIONS (4)
  - Spinal disorder [Unknown]
  - Off label use [Not Recovered/Not Resolved]
  - Back disorder [Unknown]
  - Illness [Unknown]

NARRATIVE: CASE EVENT DATE: 20200305
